FAERS Safety Report 6022346-6 (Version None)
Quarter: 2008Q4

REPORT INFORMATION
  Report Type: 
  Country: None (occurrence: None)
  Receive Date: 20081230
  Receipt Date: 20081218
  Transmission Date: 20090506
  Serious: Yes (Life-Threatening, Hospitalization)
  Sender: FDA-Public Use
  Company Number: GB-PFIZER INC-2008157031

PATIENT

DRUGS (1)
  1. DEPO-PROVERA [Suspect]
     Indication: CONTRACEPTION
     Dosage: 150 MG
     Route: 030
     Dates: start: 20081128

REACTIONS (7)
  - DYSPNOEA [None]
  - ERYTHEMA [None]
  - FEELING HOT [None]
  - PRURITUS [None]
  - RASH [None]
  - TACHYCARDIA [None]
  - WHEEZING [None]
